FAERS Safety Report 9123331 (Version 1)
Quarter: 2013Q1

REPORT INFORMATION
  Report Type: Spontaneous
  Country: US (occurrence: US)
  Receive Date: 20130227
  Receipt Date: 20130227
  Transmission Date: 20140127
  Serious: No
  Sender: FDA-Public Use
  Company Number: US-PFIZER INC-2013066949

PATIENT
  Age: 69 Year
  Sex: Male
  Weight: 113.38 kg

DRUGS (7)
  1. TIKOSYN [Suspect]
     Indication: ATRIAL FIBRILLATION
     Dosage: 250 UG, TWO TIMES A DAY
     Route: 048
     Dates: start: 1996
  2. NIASPAN [Concomitant]
     Dosage: 1000 MG, UNK
  3. WARFARIN [Concomitant]
     Dosage: 5 MG, UNK
  4. AMLODIPINE [Concomitant]
     Dosage: 10 MG, UNK
  5. SIMVASTATIN [Concomitant]
     Dosage: 80 MG, UNK
  6. CARVEDILOL [Concomitant]
     Dosage: 3.5 MG, UNK
  7. BENAZEPRIL [Concomitant]
     Dosage: 20 MG, UNK

REACTIONS (1)
  - Diarrhoea [Not Recovered/Not Resolved]
